FAERS Safety Report 7703295-1 (Version None)
Quarter: 2011Q3

REPORT INFORMATION
  Report Type: 
  Country: None (occurrence: None)
  Receive Date: 20110823
  Receipt Date: 20110811
  Transmission Date: 20111222
  Serious: Yes (Hospitalization, Other)
  Sender: FDA-Public Use
  Company Number: CA-ELI_LILLY_AND_COMPANY-CA201108003711

PATIENT
  Sex: Male
  Weight: 111 kg

DRUGS (9)
  1. CLONAZEPAM [Concomitant]
  2. ZYPREXA [Suspect]
     Dosage: 5 MG, UNKNOWN
  3. PAXIL [Concomitant]
  4. DIVALPROEX SODIUM [Concomitant]
  5. ZYPREXA [Suspect]
     Dosage: 7.5 MG, UNKNOWN
  6. ZYPREXA [Suspect]
     Dosage: 20 MG, UNKNOWN
  7. SLOW-K [Concomitant]
  8. ZYPREXA [Suspect]
     Dosage: 7.5 MG, UNKNOWN
  9. ZYPREXA [Suspect]
     Dosage: 2.5 MG, UNKNOWN

REACTIONS (11)
  - DYSLIPIDAEMIA [None]
  - MICROALBUMINURIA [None]
  - HYPERTENSION [None]
  - CONVULSION [None]
  - DIABETES MELLITUS [None]
  - SLEEP APNOEA SYNDROME [None]
  - LIVER FUNCTION TEST ABNORMAL [None]
  - DIABETIC RETINOPATHY [None]
  - HAEMOGLOBIN DECREASED [None]
  - PLATELET COUNT DECREASED [None]
  - ASPARTATE AMINOTRANSFERASE INCREASED [None]
